FAERS Safety Report 19026384 (Version 1)
Quarter: 2021Q1

REPORT INFORMATION
  Report Type: Spontaneous
  Country: US (occurrence: US)
  Receive Date: 20210318
  Receipt Date: 20210318
  Transmission Date: 20210420
  Serious: Yes (Life-Threatening, Hospitalization)
  Sender: FDA-Public Use
  Company Number: US-MYLANLABS-2021M1016082

PATIENT
  Age: 17 Year
  Sex: Male

DRUGS (4)
  1. CEFEPIME [Suspect]
     Active Substance: CEFEPIME HYDROCHLORIDE
     Indication: STOMATOCOCCAL INFECTION
     Dosage: UNK
     Route: 065
  2. CYTARABINE. [Suspect]
     Active Substance: CYTARABINE
     Indication: ACUTE MYELOID LEUKAEMIA
     Dosage: UNK
     Route: 037
  3. VANCOMYCIN [Suspect]
     Active Substance: VANCOMYCIN
     Indication: STOMATOCOCCAL INFECTION
     Dosage: UNK
     Route: 065
  4. ETOPOSIDE. [Suspect]
     Active Substance: ETOPOSIDE
     Indication: ACUTE MYELOID LEUKAEMIA
     Dosage: SYSTEMIC
     Route: 065

REACTIONS (10)
  - Drug ineffective [Unknown]
  - Pneumonia [Unknown]
  - CNS ventriculitis [Unknown]
  - Febrile neutropenia [Unknown]
  - Coma [Unknown]
  - Stomatococcal infection [Unknown]
  - Meningitis [Unknown]
  - Brain oedema [Unknown]
  - Sepsis [Unknown]
  - Encephalitis [Unknown]
